FAERS Safety Report 19237928 (Version 1)
Quarter: 2021Q2

REPORT INFORMATION
  Report Type: Spontaneous
  Country: US (occurrence: US)
  Receive Date: 20210510
  Receipt Date: 20210510
  Transmission Date: 20210717
  Serious: Yes (Hospitalization)
  Sender: FDA-Public Use
  Company Number: None

PATIENT
  Sex: Male

DRUGS (11)
  1. CALCIT/ TAB VITAMIN D [Concomitant]
  2. METFORMIN [Concomitant]
     Active Substance: METFORMIN HYDROCHLORIDE
  3. PREDISIONE [Concomitant]
  4. ELIGARD [Suspect]
     Active Substance: LEUPROLIDE ACETATE
     Indication: PROSTATE CANCER
     Dosage: ?          OTHER FREQUENCY:EVERY 3 MONTHS;?
     Dates: start: 20201119
  5. AVALIDE [Concomitant]
     Active Substance: HYDROCHLOROTHIAZIDE\IRBESARTAN
  6. GLYBURIDE. [Concomitant]
     Active Substance: GLYBURIDE
  7. SCHIFF MOVE FREE [Concomitant]
     Active Substance: DIETARY SUPPLEMENT
  8. ONGLYZA [Concomitant]
     Active Substance: SAXAGLIPTIN HYDROCHLORIDE
  9. ALEVE [Concomitant]
     Active Substance: NAPROXEN SODIUM
  10. ASPIRIN. [Concomitant]
     Active Substance: ASPIRIN
  11. PRESERVISION [Concomitant]
     Active Substance: MINERALS\VITAMINS

REACTIONS (1)
  - Ulcer [None]
